FAERS Safety Report 7360347-6 (Version None)
Quarter: 2011Q1

REPORT INFORMATION
  Report Type: 
  Country: None (occurrence: None)
  Receive Date: 20110318
  Receipt Date: 20110309
  Transmission Date: 20110831
  Serious: No
  Sender: FDA-Public Use
  Company Number: US-JNJFOC-20110305310

PATIENT
  Sex: Female
  Weight: 99.79 kg

DRUGS (4)
  1. NORCO [Concomitant]
     Indication: BREAKTHROUGH PAIN
     Route: 048
  2. BUPROPION [Concomitant]
     Indication: DEPRESSION
     Route: 048
  3. FENTANYL-100 [Suspect]
     Indication: FIBROMYALGIA
     Route: 062
  4. SOMA [Concomitant]
     Indication: MUSCLE RELAXANT THERAPY
     Dosage: 3 TIMES DAILY AS NEEDEED
     Route: 048

REACTIONS (3)
  - DRUG INEFFECTIVE [None]
  - INAPPROPRIATE SCHEDULE OF DRUG ADMINISTRATION [None]
  - WRONG TECHNIQUE IN DRUG USAGE PROCESS [None]
